FAERS Safety Report 20280451 (Version 2)
Quarter: 2022Q1

REPORT INFORMATION
  Report Type: Spontaneous
  Country: US (occurrence: US)
  Receive Date: 20220103
  Receipt Date: 20220217
  Transmission Date: 20220423
  Serious: Yes (Death, Other)
  Sender: FDA-Public Use
  Company Number: US-KYOWAKIRIN-2021BKK021728

PATIENT

DRUGS (21)
  1. CRYSVITA [Suspect]
     Active Substance: BUROSUMAB-TWZA
     Indication: Hereditary hypophosphataemic rickets
     Dosage: 20 MG, Q MONTH
     Route: 058
     Dates: start: 20190808
  2. CRYSVITA [Suspect]
     Active Substance: BUROSUMAB-TWZA
     Dosage: 80 MG (TWO 30 MG AND ONE 20 MG, FOR EACH CRYSVITA STRENGTH TO ACHIEVE THE DOSE OF 80 MG), EVERY 4 WE
     Route: 058
     Dates: start: 20200210
  3. CRYSVITA [Suspect]
     Active Substance: BUROSUMAB-TWZA
     Indication: Hereditary hypophosphataemic rickets
     Dosage: 80 MG (TWO 30 MG AND ONE 20 MG FOR EACH CRYSVITA STRENGTH TO ACHIEVE THE DOSE OF 80 MG), EVERY 4 WEE
     Route: 058
     Dates: start: 20200210
  4. FLUZONE HIGH DOSE QUADRIVALENT [Concomitant]
     Indication: Product used for unknown indication
     Dosage: 0.5 ML, ONCE
     Route: 030
     Dates: start: 20200924, end: 20200924
  5. KETOCONAZOLE [Concomitant]
     Active Substance: KETOCONAZOLE
     Indication: Product used for unknown indication
     Dosage: APPLY TO AFFECTED SKIN AREA TWO TIMES A WEEK
     Route: 061
     Dates: start: 20200620
  6. HYDROCHLOROTHIAZIDE\TRIAMTERENE [Concomitant]
     Active Substance: HYDROCHLOROTHIAZIDE\TRIAMTERENE
     Indication: Product used for unknown indication
     Dosage: UNK
     Route: 065
     Dates: start: 20180808
  7. CALCITRIOL [Concomitant]
     Active Substance: CALCITRIOL
     Indication: Product used for unknown indication
     Dosage: 1 CAPSULE. TID
     Route: 048
     Dates: start: 20180807
  8. BUTRANS [Concomitant]
     Active Substance: BUPRENORPHINE
     Indication: Product used for unknown indication
     Dosage: UNK
     Route: 062
     Dates: start: 20180807
  9. DICLOFENAC [Concomitant]
     Active Substance: DICLOFENAC
     Indication: Product used for unknown indication
     Dosage: UNK
     Route: 061
     Dates: start: 20180807
  10. BIOTIN [Concomitant]
     Active Substance: BIOTIN
     Indication: Product used for unknown indication
     Dosage: UNK, EVERY DAY
     Route: 048
     Dates: start: 20180807
  11. BYSTOLIC [Concomitant]
     Active Substance: NEBIVOLOL HYDROCHLORIDE
     Indication: Product used for unknown indication
     Dosage: UNK
     Route: 065
     Dates: start: 20171002
  12. ACT RESTORING ANTICAVITY FLUORIDE [Concomitant]
     Indication: Product used for unknown indication
     Dosage: UNK
     Route: 061
     Dates: start: 20151214
  13. ALLEGRA ALLERGY [Concomitant]
     Active Substance: FEXOFENADINE HYDROCHLORIDE
     Indication: Product used for unknown indication
     Dosage: UNK
     Route: 048
     Dates: start: 20151214
  14. PRAVASTATIN SODIUM [Concomitant]
     Active Substance: PRAVASTATIN SODIUM
     Indication: Product used for unknown indication
     Dosage: 1 TABLET ,EVERY DAY
     Route: 048
     Dates: start: 20140804
  15. ACETAMINOPHEN\HYDROCODONE [Concomitant]
     Active Substance: ACETAMINOPHEN\HYDROCODONE
     Indication: Pain
     Dosage: 1 TABLET, EVERY 4 TO 6 HOURS AS NEEDED
     Route: 048
     Dates: start: 20140801
  16. ASPIRIN [Concomitant]
     Active Substance: ASPIRIN
     Indication: Product used for unknown indication
     Dosage: UNK, EVERY DAY
     Route: 048
     Dates: start: 20140729
  17. QUINAPRIL [Concomitant]
     Active Substance: QUINAPRIL
     Indication: Product used for unknown indication
     Dosage: 1 TABLET, TWICE A DAY
     Route: 048
     Dates: start: 20140617
  18. QUINAPRIL [Concomitant]
     Active Substance: QUINAPRIL
     Dosage: 1 TABLET, TWICE A DAY
     Route: 048
     Dates: start: 20200318
  19. OXYBUTYNIN [Concomitant]
     Active Substance: OXYBUTYNIN
     Indication: Product used for unknown indication
     Dosage: UNK
     Route: 065
     Dates: start: 20140607
  20. GABAPENTIN [Concomitant]
     Active Substance: GABAPENTIN
     Indication: Product used for unknown indication
     Dosage: 1 CAPSULE AT BEDTIME
     Route: 048
     Dates: start: 20140328
  21. OMEPRAZOLE [Concomitant]
     Active Substance: OMEPRAZOLE
     Indication: Product used for unknown indication
     Dosage: 1 CAPSULE, EVERY DAY
     Route: 048
     Dates: start: 20140106

REACTIONS (2)
  - Death [Fatal]
  - Contraindicated product administered [Unknown]

NARRATIVE: CASE EVENT DATE: 20190808
